FAERS Safety Report 25173881 (Version 1)
Quarter: 2025Q2

REPORT INFORMATION
  Report Type: Spontaneous
  Country: CN (occurrence: CN)
  Receive Date: 20250408
  Receipt Date: 20250408
  Transmission Date: 20250717
  Serious: Yes (Other)
  Sender: SANOFI AVENTIS
  Company Number: CN-SA-2025SA098781

PATIENT
  Age: 70 Year
  Sex: Male
  Weight: 44 kg

DRUGS (2)
  1. OXALIPLATIN [Suspect]
     Active Substance: OXALIPLATIN
     Indication: Chemotherapy
     Dosage: 150 MG, QD
     Route: 041
     Dates: start: 20250326, end: 20250326
  2. DEXTROSE [Concomitant]
     Active Substance: DEXTROSE MONOHYDRATE
     Indication: Vehicle solution use
     Dosage: 500 ML, QD
     Route: 041
     Dates: start: 20250326, end: 20250326

REACTIONS (2)
  - Chills [Recovered/Resolved]
  - Body temperature increased [Recovered/Resolved]

NARRATIVE: CASE EVENT DATE: 20250326
